FAERS Safety Report 12448894 (Version 4)
Quarter: 2016Q3

REPORT INFORMATION
  Report Type: Report from Study
  Country: CA (occurrence: CA)
  Receive Date: 20160615
  Receipt Date: 20160923
  Transmission Date: 20161109
  Serious: Yes (Death, Life-Threatening, Hospitalization)
  Sender: FDA-Public Use
  Company Number: CA-HLSUS-2016-CA-000196

PATIENT
  Age: 65 Year
  Sex: Male

DRUGS (1)
  1. CLOZARIL [Suspect]
     Active Substance: CLOZAPINE
     Route: 048
     Dates: start: 19991201, end: 20160604

REACTIONS (4)
  - Rhabdomyolysis [Unknown]
  - Coma [Unknown]
  - Electrocardiogram QT prolonged [Unknown]
  - Death [Fatal]

NARRATIVE: CASE EVENT DATE: 20160615
